FAERS Safety Report 8554769-5 (Version None)
Quarter: 2012Q3

REPORT INFORMATION
  Report Type: 
  Country: None (occurrence: None)
  Receive Date: 20120731
  Receipt Date: 20120724
  Transmission Date: 20120928
  Serious: Yes (Life-Threatening, Hospitalization)
  Sender: FDA-Public Use
  Company Number: DE-JNJFOC-20120517381

PATIENT
  Sex: Male

DRUGS (12)
  1. XARELTO [Suspect]
     Indication: KNEE ARTHROPLASTY
     Dosage: 10 MG, HS
     Route: 048
  2. ARCOXIA [Suspect]
     Indication: PAIN
     Route: 048
  3. BISOPROLOL FUMARATE [Suspect]
     Indication: HYPERTENSION
     Route: 048
  4. OPIUM ALKALOIDS AND DERIVATIVES [Suspect]
     Indication: PRODUCT USED FOR UNKNOWN INDICATION
  5. RAMIPRIL [Suspect]
     Indication: HYPERTENSION
     Route: 048
  6. AMITRIPTYLINE HCL [Suspect]
     Indication: PRODUCT USED FOR UNKNOWN INDICATION
     Route: 048
  7. TORSEMIDE [Suspect]
     Indication: DIURETIC THERAPY
     Route: 048
  8. AMLODIPINE [Suspect]
     Indication: HYPERTENSION
     Route: 048
  9. VOLTAREN [Suspect]
     Indication: PAIN
     Route: 048
  10. PANTOPRAZOLE [Suspect]
     Indication: GASTRIC DISORDER
     Route: 048
  11. TARGIN [Suspect]
     Indication: PAIN
  12. ALFUZOSIN [Suspect]
     Indication: PROSTATIC DISORDER
     Route: 048

REACTIONS (1)
  - LOSS OF CONSCIOUSNESS [None]
